FAERS Safety Report 22084512 (Version 1)
Quarter: 2023Q1

REPORT INFORMATION
  Report Type: Spontaneous
  Country: US (occurrence: None)
  Receive Date: 20230309
  Receipt Date: 20230309
  Transmission Date: 20230417
  Serious: Yes (Other)
  Sender: FDA-Public Use
  Company Number: None

PATIENT
  Age: 25 Year
  Sex: Female
  Weight: 159 kg

DRUGS (2)
  1. TRIFAROTENE [Suspect]
     Active Substance: TRIFAROTENE
     Indication: Acne
     Dosage: QHS TOPICAL?
     Route: 061
     Dates: start: 20230127, end: 20230222
  2. AKLIEF [Suspect]
     Active Substance: TRIFAROTENE
     Indication: Acne
     Dosage: OTHER FREQUENCY : QHS;?
     Route: 061
     Dates: start: 20230127, end: 20230222

REACTIONS (3)
  - Adnexal torsion [None]
  - Fallopian tube obstruction [None]
  - Abdominal pain upper [None]

NARRATIVE: CASE EVENT DATE: 20230208
